FAERS Safety Report 13182009 (Version 2)
Quarter: 2017Q2

REPORT INFORMATION
  Report Type: Spontaneous
  Country: US (occurrence: US)
  Receive Date: 20170202
  Receipt Date: 20170502
  Transmission Date: 20170830
  Serious: No
  Sender: FDA-Public Use
  Company Number: US-IMPAX LABORATORIES, INC-2016-IPXL-02181

PATIENT
  Age: 59 Year
  Sex: Male

DRUGS (6)
  1. RYTARY [Suspect]
     Active Substance: CARBIDOPA\LEVODOPA
     Indication: PARKINSON^S DISEASE
     Dosage: 23.75/95 MG; 2 CAPSULES FOUR TIMES A DAY AND 1 AT BEDTIME
     Route: 065
     Dates: start: 201608
  2. CARBIDOPA-LEVODOPA ODT [Suspect]
     Active Substance: CARBIDOPA\LEVODOPA
     Indication: PARKINSON^S DISEASE
     Dosage: ONE QUARTER ALONG WITH 9 AM AND 1 PM DOSE OF RYTARY
     Route: 065
  3. TRIHEXYPHENIDYL [Concomitant]
     Active Substance: TRIHEXYPHENIDYL
     Indication: PRODUCT USED FOR UNKNOWN INDICATION
     Dosage: 2 MG HALF A TABLET, 2 TIMES A DAY
     Route: 065
  4. RYTARY [Suspect]
     Active Substance: CARBIDOPA\LEVODOPA
     Dosage: 23.75/95 MG; 2 CAPSULES FOUR TIMES A DAY; SOMETIMES WOULD SKIP BED TIME DOSE
     Route: 065
     Dates: start: 2016
  5. AZILECT [Concomitant]
     Active Substance: RASAGILINE MESYLATE
     Indication: PRODUCT USED FOR UNKNOWN INDICATION
     Dosage: UNK, 1 /DAY
     Route: 065
  6. CITALOPRAM [Concomitant]
     Active Substance: CITALOPRAM HYDROBROMIDE
     Indication: PRODUCT USED FOR UNKNOWN INDICATION
     Dosage: UNK; HALF A PILL IN MORNING
     Route: 065

REACTIONS (6)
  - Mental status changes [Recovering/Resolving]
  - Therapeutic response shortened [Not Recovered/Not Resolved]
  - Disturbance in attention [Recovering/Resolving]
  - Dyskinesia [Recovering/Resolving]
  - Drug dose omission [Unknown]
  - Confusional state [Recovering/Resolving]

NARRATIVE: CASE EVENT DATE: 2016
